FAERS Safety Report 15500742 (Version 2)
Quarter: 2019Q1

REPORT INFORMATION
  Report Type: Spontaneous
  Country: SE (occurrence: SE)
  Receive Date: 20181015
  Receipt Date: 20190102
  Transmission Date: 20190417
  Serious: Yes (Hospitalization, Disabling, Other)
  Sender: FDA-Public Use
  Company Number: SE-BRISTOL-MYERS SQUIBB COMPANY-BMS-2018-092934

PATIENT
  Sex: Female

DRUGS (1)
  1. YERVOY [Suspect]
     Active Substance: IPILIMUMAB
     Indication: MALIGNANT MELANOMA
     Dosage: UNK
     Route: 065
     Dates: start: 20141031, end: 20150105

REACTIONS (4)
  - Neuropathy peripheral [Unknown]
  - Myelitis [Unknown]
  - Radiculopathy [Unknown]
  - Vitiligo [Unknown]

NARRATIVE: CASE EVENT DATE: 2016
